FAERS Safety Report 5213954-0 (Version None)
Quarter: 2007Q1

REPORT INFORMATION
  Report Type: 
  Country: None (occurrence: None)
  Receive Date: 20070122
  Receipt Date: 20070116
  Transmission Date: 20070707
  Serious: Yes (Death, Hospitalization)
  Sender: FDA-Public Use
  Company Number: US-BAYER-200710035BWH

PATIENT
  Age: 61 Year
  Sex: Male
  Weight: 60 kg

DRUGS (13)
  1. SORAFENIB [Suspect]
     Indication: NON-SMALL CELL LUNG CANCER METASTATIC
     Dosage: TOTAL DAILY DOSE: 800 MG  UNIT DOSE: 200 MG
     Route: 048
     Dates: start: 20061219, end: 20061230
  2. CARBOPLATIN [Suspect]
     Indication: NON-SMALL CELL LUNG CANCER METASTATIC
     Route: 042
     Dates: start: 20061218, end: 20061218
  3. TAXOL [Suspect]
     Indication: NON-SMALL CELL LUNG CANCER METASTATIC
     Route: 042
     Dates: start: 20061218, end: 20061218
  4. COMBIVENT [Concomitant]
     Indication: DYSPNOEA
     Route: 055
     Dates: start: 20060701, end: 20061231
  5. NPH INSULIN [Concomitant]
     Indication: DIABETES MELLITUS
     Route: 058
     Dates: start: 20041201, end: 20070105
  6. OXYCODONE HCL EXTENDED-RELEASE [Concomitant]
     Indication: PAIN
     Route: 048
     Dates: start: 20061101, end: 20061231
  7. HYDROCODONE [Concomitant]
     Indication: PAIN
     Route: 048
     Dates: start: 20061212, end: 20070105
  8. AMBIEN [Concomitant]
     Indication: INSOMNIA
     Route: 048
     Dates: start: 20061201, end: 20070105
  9. OXYGEN [Concomitant]
     Indication: HYPOXIA
     Route: 055
     Dates: start: 20061223, end: 20070103
  10. LASIX [Concomitant]
     Indication: OEDEMA PERIPHERAL
     Route: 048
     Dates: start: 20061230, end: 20061231
  11. MICRO-K [Concomitant]
     Indication: OEDEMA PERIPHERAL
     Route: 048
     Dates: start: 20061230, end: 20061231
  12. MEDROL [Concomitant]
     Indication: RASH
     Route: 048
     Dates: start: 20061230, end: 20061231
  13. DIFLUCAN [Concomitant]
     Indication: RASH
     Route: 042
     Dates: start: 20061231, end: 20070103

REACTIONS (3)
  - FEBRILE NEUTROPENIA [None]
  - PULMONARY OEDEMA [None]
  - RESPIRATORY FAILURE [None]
